FAERS Safety Report 19418133 (Version 1)
Quarter: 2021Q2

REPORT INFORMATION
  Report Type: Spontaneous
  Country: US (occurrence: US)
  Receive Date: 20210614
  Receipt Date: 20210614
  Transmission Date: 20210717
  Serious: No
  Sender: FDA-Public Use
  Company Number: None

PATIENT
  Age: 66 Year
  Sex: Male
  Weight: 771.11 kg

DRUGS (1)
  1. AMINOLEVULINIC ACID HCL [Suspect]
     Active Substance: AMINOLEVULINIC ACID HYDROCHLORIDE

REACTIONS (2)
  - Application site erosion [None]
  - Device breakage [None]

NARRATIVE: CASE EVENT DATE: 20210506
